FAERS Safety Report 10249250 (Version 1)
Quarter: 2014Q2

REPORT INFORMATION
  Report Type: Spontaneous
  Country: US (occurrence: None)
  Receive Date: 20140618
  Receipt Date: 20140618
  Transmission Date: 20141212
  Serious: Yes (Hospitalization)
  Sender: FDA-Public Use
  Company Number: 14AE026

PATIENT
  Sex: Female

DRUGS (3)
  1. BISACODYL [Suspect]
     Indication: CONSTIPATION
     Dosage: 2 BY MOUTH/ PER DAY
     Route: 048
     Dates: start: 20131128, end: 20131129
  2. WARFARIN [Concomitant]
  3. INSULIN [Concomitant]

REACTIONS (4)
  - Diarrhoea [None]
  - Dehydration [None]
  - Pancreatic disorder [None]
  - Inflammation [None]
